FAERS Safety Report 4368169-5 (Version None)
Quarter: 2004Q2

REPORT INFORMATION
  Report Type: 
  Country: None (occurrence: None)
  Receive Date: 20040527
  Receipt Date: 20040305
  Transmission Date: 20050107
  Serious: No
  Sender: FDA-Public Use
  Company Number: 205106

PATIENT
  Age: 54 Year
  Sex: Male
  Weight: 104.3 kg

DRUGS (5)
  1. RAPTIVA [Suspect]
     Indication: PSORIASIS
     Dosage: 0.7 ML,1/WEEK, SUBCUTANEOUS, 1MG/KG
     Route: 058
     Dates: start: 20040126
  2. ADVAIR(SALMETEROL XINAFOATE) [Concomitant]
  3. ALLEGRA [Concomitant]
  4. LISINOPRIL [Concomitant]
  5. FLONASE [Concomitant]

REACTIONS (3)
  - ARTHRALGIA [None]
  - BACK PAIN [None]
  - INFLUENZA LIKE ILLNESS [None]
